FAERS Safety Report 21773562 (Version 3)
Quarter: 2024Q1

REPORT INFORMATION
  Report Type: Spontaneous
  Country: JP (occurrence: JP)
  Receive Date: 20221223
  Receipt Date: 20240116
  Transmission Date: 20240409
  Serious: Yes (Other)
  Sender: FDA-Public Use
  Company Number: JP-ABBVIE-22K-087-4527117-00

PATIENT
  Age: 75 Year
  Sex: Male
  Weight: 68 kg

DRUGS (1)
  1. GLECAPREVIR\PIBRENTASVIR [Suspect]
     Active Substance: GLECAPREVIR\PIBRENTASVIR
     Indication: Chronic hepatitis C
     Route: 048
     Dates: start: 20220603, end: 20220728

REACTIONS (7)
  - Suspected drug-induced liver injury [Unknown]
  - Weight decreased [Recovered/Resolved]
  - Weight increased [Unknown]
  - Hepatic enzyme increased [Recovered/Resolved]
  - Hyperbilirubinaemia [Recovered/Resolved]
  - Hepatic steatosis [Unknown]
  - Cholestasis [Unknown]

NARRATIVE: CASE EVENT DATE: 20220630
